FAERS Safety Report 14357932 (Version 1)
Quarter: 2018Q1

REPORT INFORMATION
  Report Type: Report from Study
  Country: IL (occurrence: IL)
  Receive Date: 20180105
  Receipt Date: 20180105
  Transmission Date: 20180509
  Serious: Yes (Hospitalization)
  Sender: FDA-Public Use
  Company Number: IL-TAKEDA-2018TUS000082

PATIENT
  Age: 66 Year
  Sex: Female

DRUGS (1)
  1. VEDOLIZUMAB [Suspect]
     Active Substance: VEDOLIZUMAB
     Indication: CROHN^S DISEASE
     Dosage: 300 MG, UNK
     Route: 042
     Dates: start: 20170801

REACTIONS (3)
  - Visual impairment [Not Recovered/Not Resolved]
  - Optic nerve injury [Not Recovered/Not Resolved]
  - Stress [Not Recovered/Not Resolved]
